FAERS Safety Report 4427599-3 (Version None)
Quarter: 2004Q3

REPORT INFORMATION
  Report Type: 
  Country: None (occurrence: None)
  Receive Date: 20040812
  Receipt Date: 20040802
  Transmission Date: 20050211
  Serious: Yes (Life-Threatening)
  Sender: FDA-Public Use
  Company Number: S04-FRA-03609-01

PATIENT
  Age: 75 Year
  Sex: Female

DRUGS (7)
  1. MEMANTINE HCL [Suspect]
     Dosage: 15 MG QD PO
     Route: 048
     Dates: end: 20040714
  2. MEMANTINE HCL [Suspect]
     Dosage: 10 MG QD PO
     Route: 048
  3. MEMANTINE HCL [Suspect]
     Dosage: 5 MG QD PO
     Route: 048
     Dates: start: 20040701
  4. MOTILIUM [Suspect]
     Dosage: 1 TID PO
     Route: 048
     Dates: start: 20040701, end: 20040714
  5. ATHYMIL (MIANSERIN HYDROCHLORIDE) [Suspect]
     Dosage: 1 QD PO
     Route: 048
     Dates: start: 20040603, end: 20040714
  6. KARDEGIC (ACETYLSALICYLATE LISINE) [Suspect]
     Dosage: 160 MG QD PO
     Route: 048
     Dates: start: 20040705, end: 20040714
  7. LOVENOX [Suspect]
     Dates: start: 20040611, end: 20040714

REACTIONS (1)
  - AGRANULOCYTOSIS [None]
